FAERS Safety Report 9610836 (Version 2)
Quarter: 2013Q4

REPORT INFORMATION
  Report Type: Report from Study
  Country: US (occurrence: US)
  Receive Date: 20131009
  Receipt Date: 20131202
  Transmission Date: 20140711
  Serious: No
  Sender: FDA-Public Use
  Company Number: US-009507513-1309USA009644

PATIENT
  Sex: Female

DRUGS (3)
  1. VICTRELIS [Suspect]
     Indication: HEPATITIS C
     Dosage: 2400 MG, 4 IN 8 H
     Route: 048
  2. COPEGUS [Suspect]
     Indication: CHRONIC HEPATITIS C
     Dosage: 3 PILL IN THE MORNING AND 2 PILLS IN THE EVENING
     Route: 048
     Dates: start: 20121018
  3. PEGASYS [Suspect]
     Indication: CHRONIC HEPATITIS C
     Dosage: 180 MICROGRAM, QW
     Route: 058
     Dates: start: 201203

REACTIONS (2)
  - Anaemia [Recovering/Resolving]
  - Platelet count decreased [Unknown]
